FAERS Safety Report 10255131 (Version 1)
Quarter: 2014Q2

REPORT INFORMATION
  Report Type: Spontaneous
  Country: US (occurrence: None)
  Receive Date: 20140522
  Receipt Date: 20140522
  Transmission Date: 20141212
  Serious: No
  Sender: FDA-Public Use
  Company Number: 1000066487

PATIENT
  Age: 69 Year
  Sex: Female

DRUGS (8)
  1. TUDORZA PRESSAIR (ACLIDINIUM BROMIDE) (400 MICROGRAM, POWDER) [Suspect]
     Indication: CHRONIC OBSTRUCTIVE PULMONARY DISEASE
     Dosage: 800 UG (400 UG, 2 IN 1 D)
     Route: 055
     Dates: start: 201402, end: 20140331
  2. ADVAIR DISKUS [Concomitant]
  3. ALBUTEROL SULFATE (SALBUTAMOL SULFATE) [Concomitant]
  4. IPRATROPIUM [Concomitant]
  5. LOSARTAN [Concomitant]
  6. METFORMIN [Concomitant]
  7. HUMULIN N (INSULIN HMAN INJECTION, ISOPHANE) [Concomitant]
  8. HUMULIN R (INSULIN HUMAN) [Concomitant]

REACTIONS (1)
  - Bronchospasm [None]
